FAERS Safety Report 5252524-5 (Version None)
Quarter: 2007Q1

REPORT INFORMATION
  Report Type: 
  Country: None (occurrence: None)
  Receive Date: 20070301
  Receipt Date: 20070126
  Transmission Date: 20070707
  Serious: Yes (Hospitalization)
  Sender: FDA-Public Use
  Company Number: US-BRISTOL-MYERS SQUIBB COMPANY-13659628

PATIENT
  Age: 51 Year
  Sex: Male

DRUGS (8)
  1. ERBITUX [Suspect]
     Indication: NEOPLASM MALIGNANT
     Route: 042
     Dates: start: 20070126, end: 20070126
  2. LISINOPRIL [Concomitant]
  3. ATENOLOL [Concomitant]
  4. GLUCOPHAGE [Concomitant]
  5. GLIPIZIDE [Concomitant]
  6. ZOCOR [Concomitant]
  7. DIOVAN [Concomitant]
  8. LEXAPRO [Concomitant]

REACTIONS (1)
  - RESPIRATORY DISTRESS [None]
